FAERS Safety Report 25961700 (Version 1)
Quarter: 2025Q4

REPORT INFORMATION
  Report Type: Spontaneous
  Country: US (occurrence: US)
  Receive Date: 20251027
  Receipt Date: 20251027
  Transmission Date: 20260118
  Serious: No
  Sender: BIONPHARMA INC.
  Company Number: US-Bion-015284

PATIENT
  Sex: Female

DRUGS (1)
  1. LOPERAMIDE HYDROCHLORIDE [Suspect]
     Active Substance: LOPERAMIDE HYDROCHLORIDE
     Indication: Crohn^s disease
     Dosage: 6 SOFT GELS AT A TIME
     Route: 048

REACTIONS (2)
  - Extra dose administered [Unknown]
  - Product packaging issue [Unknown]
